FAERS Safety Report 5623845-9 (Version None)
Quarter: 2008Q1

REPORT INFORMATION
  Report Type: 
  Country: None (occurrence: None)
  Receive Date: 20080207
  Receipt Date: 20080129
  Transmission Date: 20080703
  Serious: Yes (Hospitalization, Other)
  Sender: FDA-Public Use
  Company Number: 2007SP024397

PATIENT
  Age: 51 Year
  Sex: Male

DRUGS (2)
  1. REBETOL [Suspect]
     Indication: HEPATITIS C ANTIBODY POSITIVE
     Dosage: 200 MG,QD;PO
     Route: 048
     Dates: start: 20070220, end: 20071203
  2. PEG-INTRON [Concomitant]

REACTIONS (1)
  - TACHYCARDIA [None]
